FAERS Safety Report 8162248-2 (Version None)
Quarter: 2012Q1

REPORT INFORMATION
  Report Type: 
  Country: None (occurrence: None)
  Receive Date: 20120224
  Receipt Date: 20120214
  Transmission Date: 20120608
  Serious: Yes (Other)
  Sender: FDA-Public Use
  Company Number: RU-BAYER-2012-008579

PATIENT
  Sex: Female

DRUGS (2)
  1. MIRENA [Suspect]
     Indication: CONTRACEPTION
     Dosage: 20 MCG/24HR, CONT
     Route: 015
     Dates: start: 20080101
  2. DROSPIRENONE AND ETHINYL ESTRADIOL [Suspect]
     Indication: ORAL CONTRACEPTION

REACTIONS (6)
  - BREAST CYST [None]
  - FIBROCYSTIC BREAST DISEASE [None]
  - CERVICAL POLYP [None]
  - OVARIAN CYST [None]
  - VAGINAL HAEMORRHAGE [None]
  - NO ADVERSE EVENT [None]
